FAERS Safety Report 8230353-8 (Version None)
Quarter: 2012Q1

REPORT INFORMATION
  Report Type: 
  Country: None (occurrence: None)
  Receive Date: 20120323
  Receipt Date: 20120316
  Transmission Date: 20120608
  Serious: Yes (Hospitalization)
  Sender: FDA-Public Use
  Company Number: GB-US-EMD SERONO, INC.-7115846

PATIENT
  Sex: Female

DRUGS (1)
  1. REBIF [Suspect]
     Indication: PRODUCT USED FOR UNKNOWN INDICATION
     Dates: start: 20000101

REACTIONS (5)
  - INJECTION SITE VESICLES [None]
  - DEVICE MALFUNCTION [None]
  - INJECTION SITE INJURY [None]
  - INJECTION SITE RASH [None]
  - INJECTION SITE ABSCESS [None]
